FAERS Safety Report 6521006-2 (Version None)
Quarter: 2009Q4

REPORT INFORMATION
  Report Type: 
  Country: None (occurrence: None)
  Receive Date: 20091229
  Receipt Date: 20091222
  Transmission Date: 20100525
  Serious: Yes (Other)
  Sender: FDA-Public Use
  Company Number: US-CVT-090831

PATIENT

DRUGS (3)
  1. RANEXA [Suspect]
     Indication: ANGINA PECTORIS
     Dosage: 1000 MG, BID
     Dates: start: 20090901, end: 20091201
  2. PRAVASTATIN [Suspect]
     Dates: end: 20091201
  3. CRESTOR [Suspect]
     Dates: end: 20091201

REACTIONS (2)
  - DRUG ADMINISTRATION ERROR [None]
  - RHABDOMYOLYSIS [None]
